FAERS Safety Report 16337706 (Version 2)
Quarter: 2019Q2

REPORT INFORMATION
  Report Type: Report from Study
  Country: BR (occurrence: BR)
  Receive Date: 20190521
  Receipt Date: 20190529
  Transmission Date: 20190711
  Serious: Yes (Hospitalization, Other)
  Sender: FDA-Public Use
  Company Number: PHHY2017BR134858

PATIENT
  Age: 81 Year
  Sex: Female
  Weight: 73 kg

DRUGS (13)
  1. ACLASTA [Suspect]
     Active Substance: ZOLEDRONIC ACID
     Dosage: 1 DF(5 MG/100 ML), Q12MO
     Route: 042
     Dates: start: 20171213
  2. CLOPIDOGREL [Concomitant]
     Active Substance: CLOPIDOGREL BISULFATE
     Indication: THROMBOSIS
     Dosage: 1 DF, QD (5 YEARS)
     Route: 048
  3. ACLASTA [Suspect]
     Active Substance: ZOLEDRONIC ACID
     Dosage: 1 DF (5 MG/100 ML), Q12MO
     Route: 042
     Dates: start: 2015
  4. RIVASTIGMINE. [Suspect]
     Active Substance: RIVASTIGMINE
     Indication: PRODUCT USED FOR UNKNOWN INDICATION
     Dosage: UNK
     Route: 065
  5. ACLASTA [Suspect]
     Active Substance: ZOLEDRONIC ACID
     Dosage: 1 DF (5 MG/100 ML), Q12MO
     Route: 042
     Dates: start: 2011
  6. ACLASTA [Suspect]
     Active Substance: ZOLEDRONIC ACID
     Dosage: 1 DF (5 MG/100 ML), Q12MO
     Route: 042
     Dates: start: 2010
  7. OSCAL [Concomitant]
     Active Substance: CALCIUM CARBONATE
     Indication: OSTEOPOROSIS
     Dosage: 1 DF, QD (5 YEARS AGO)
     Route: 048
  8. ACLASTA [Suspect]
     Active Substance: ZOLEDRONIC ACID
     Indication: OSTEOPOROSIS
     Dosage: 1 DF (5 MG/100 ML), Q12MO
     Route: 042
     Dates: start: 2009
  9. DIOVAN [Suspect]
     Active Substance: VALSARTAN
     Indication: HYPERTENSION
     Route: 065
  10. DIOVAN AMLO [Concomitant]
     Active Substance: AMLODIPINE\VALSARTAN
     Indication: HYPERTENSION
     Dosage: 2 DF, QD (4 YEARS)
     Route: 048
  11. ACLASTA [Suspect]
     Active Substance: ZOLEDRONIC ACID
     Dosage: 1 DF (5 MG/100 ML), Q12MO
     Route: 042
     Dates: start: 2012
  12. ACLASTA [Suspect]
     Active Substance: ZOLEDRONIC ACID
     Dosage: 1 DF(5 MG/100 ML), Q12MO
     Route: 042
     Dates: start: 2016
  13. RIVASTIGMINE. [Concomitant]
     Active Substance: RIVASTIGMINE
     Indication: DEMENTIA ALZHEIMER^S TYPE
     Dosage: 2 DF, QD (10 YEARS)
     Route: 048

REACTIONS (25)
  - Dementia Alzheimer^s type [Not Recovered/Not Resolved]
  - Femur fracture [Unknown]
  - Weight decreased [Recovering/Resolving]
  - Panic disorder [Recovering/Resolving]
  - Pain in extremity [Unknown]
  - Paralysis [Not Recovered/Not Resolved]
  - Osteoarthritis [Recovering/Resolving]
  - Pain [Not Recovered/Not Resolved]
  - Bone pain [Unknown]
  - Parkinson^s disease [Not Recovered/Not Resolved]
  - Nervous system disorder [Unknown]
  - Seizure [Recovering/Resolving]
  - Fear [Recovering/Resolving]
  - Eating disorder [Recovering/Resolving]
  - Fall [Unknown]
  - Pain [Recovered/Resolved]
  - Fall [Recovered/Resolved]
  - Upper limb fracture [Recovering/Resolving]
  - Wrist fracture [Unknown]
  - Rib fracture [Recovered/Resolved]
  - Weight increased [Not Recovered/Not Resolved]
  - Hypoacusis [Unknown]
  - Hypertension [Unknown]
  - Depression [Recovering/Resolving]
  - Body height decreased [Not Recovered/Not Resolved]

NARRATIVE: CASE EVENT DATE: 2017
